FAERS Safety Report 7585388-5 (Version None)
Quarter: 2011Q3

REPORT INFORMATION
  Report Type: 
  Country: None (occurrence: None)
  Receive Date: 20110701
  Receipt Date: 20110622
  Transmission Date: 20111222
  Serious: Yes (Death)
  Sender: FDA-Public Use
  Company Number: US-BRACCO-006390

PATIENT

DRUGS (1)
  1. ISOVUE-370 [Suspect]
     Indication: CATHETERISATION CARDIAC
     Dosage: 3 INJECTIONS OF ISOVUE 370 VIA E2000 VOYAGER
     Route: 013
     Dates: start: 20110601, end: 20110601

REACTIONS (1)
  - ANAPHYLACTIC REACTION [None]
